FAERS Safety Report 10583374 (Version 1)
Quarter: 2014Q4

REPORT INFORMATION
  Report Type: Spontaneous
  Country: TW (occurrence: TW)
  Receive Date: 20141114
  Receipt Date: 20141114
  Transmission Date: 20150529
  Serious: Yes (Other)
  Sender: FDA-Public Use
  Company Number: TW-CIPLA LTD.-2014TW01726

PATIENT

DRUGS (7)
  1. 5-FLUOROURACIL [Suspect]
     Active Substance: FLUOROURACIL
     Indication: NASOPHARYNGEAL CANCER
     Dosage: 450 MG/M2
  2. CISPLATIN. [Suspect]
     Active Substance: CISPLATIN
     Indication: NASOPHARYNGEAL CANCER
     Dosage: 60 MG/M2 ON DAY 1 3-WEEK CYCLE FOR 3 CYCLES
  3. P-FL REGIMEN [Suspect]
     Active Substance: CISPLATIN\FLUOROURACIL\LEUCOVORIN
     Indication: NASOPHARYNGEAL CANCER
     Dosage: CISPLATIN 60 MG/M2 3-H INFUSION, 5-FU 2500 MG/M2, LEUCOVORIN 250 MG/M2INFUSION 24 H WEEKLY
  4. EPIRUBICIN [Suspect]
     Active Substance: EPIRUBICIN
     Indication: NASOPHARYNGEAL CANCER
     Dosage: 60 MG/M2 ON DAY 1, 3 WEEK CYCLE FOR 3 CYCLES
  5. LEUCOVORIN [Suspect]
     Active Substance: LEUCOVORIN
     Indication: NASOPHARYNGEAL CANCER
     Dosage: 30 MG/M2 ON DAY 8
  6. RADIOTHERAPY [Suspect]
     Active Substance: RADIATION THERAPY
     Indication: NASOPHARYNGEAL CANCER
  7. MITOMYCIN. [Suspect]
     Active Substance: MITOMYCIN
     Indication: NASOPHARYNGEAL CANCER
     Dosage: 8 MG/M2 ON DAY 1, 3 WEEK CYCLE FOR 3 CYCLES

REACTIONS (1)
  - Metastases to liver [Unknown]
